FAERS Safety Report 7562391-2 (Version None)
Quarter: 2011Q2

REPORT INFORMATION
  Report Type: 
  Country: None (occurrence: None)
  Receive Date: 20110622
  Receipt Date: 20110613
  Transmission Date: 20111010
  Serious: Yes (Other)
  Sender: FDA-Public Use
  Company Number: US-SP-2011-01341

PATIENT
  Sex: Male

DRUGS (3)
  1. THERACYS [Suspect]
     Indication: BLADDER CANCER
     Route: 043
     Dates: start: 20110317, end: 20110317
  2. THERACYS [Concomitant]
     Route: 050
     Dates: start: 20110303, end: 20110303
  3. THERACYS [Concomitant]
     Route: 050
     Dates: start: 20110310, end: 20110310

REACTIONS (5)
  - EYE IRRITATION [None]
  - FLUSHING [None]
  - HYPOAESTHESIA ORAL [None]
  - DYSPHAGIA [None]
  - RASH [None]
